FAERS Safety Report 18532693 (Version 1)
Quarter: 2020Q4

REPORT INFORMATION
  Report Type: Report from Study
  Country: None (occurrence: US)
  Receive Date: 20201123
  Receipt Date: 20201123
  Transmission Date: 20210114
  Serious: Yes (Other)
  Sender: FDA-Public Use
  Company Number: US-ABBVIE-20K-163-3656080-00

PATIENT
  Sex: Male

DRUGS (2)
  1. HUMIRA [Suspect]
     Active Substance: ADALIMUMAB
     Indication: PSORIASIS
     Route: 058
  2. HUMIRA [Suspect]
     Active Substance: ADALIMUMAB
     Indication: PSORIATIC ARTHROPATHY

REACTIONS (9)
  - Spinal fracture [Unknown]
  - Muscle injury [Recovering/Resolving]
  - Fall [Unknown]
  - Back injury [Recovering/Resolving]
  - Rotator cuff syndrome [Recovering/Resolving]
  - Hypertension [Not Recovered/Not Resolved]
  - Limb injury [Recovering/Resolving]
  - Stress [Not Recovered/Not Resolved]
  - Joint injury [Recovering/Resolving]

NARRATIVE: CASE EVENT DATE: 2019
